FAERS Safety Report 7400204-X (Version None)
Quarter: 2011Q2

REPORT INFORMATION
  Report Type: 
  Country: None (occurrence: None)
  Receive Date: 20110407
  Receipt Date: 20110325
  Transmission Date: 20111010
  Serious: Yes (Hospitalization)
  Sender: FDA-Public Use
  Company Number: US-ACTELION-A-NJ2011-46833

PATIENT

DRUGS (1)
  1. VENTAVIS [Suspect]
     Indication: PULMONARY ARTERIAL HYPERTENSION
     Dosage: UNK
     Route: 055
     Dates: start: 20101122

REACTIONS (4)
  - FEELING ABNORMAL [None]
  - HEPATIC ENZYME INCREASED [None]
  - URINARY TRACT INFECTION [None]
  - ASTHENIA [None]
